FAERS Safety Report 16151801 (Version 1)
Quarter: 2019Q2

REPORT INFORMATION
  Report Type: Spontaneous
  Country: PL (occurrence: PL)
  Receive Date: 20190403
  Receipt Date: 20190403
  Transmission Date: 20190711
  Serious: Yes (Death, Other)
  Sender: FDA-Public Use
  Company Number: PL-ROCHE-2280489

PATIENT
  Age: 56 Year
  Sex: Male
  Weight: 89 kg

DRUGS (2)
  1. TECENTRIQ [Suspect]
     Active Substance: ATEZOLIZUMAB
     Indication: LUNG NEOPLASM MALIGNANT
     Dosage: 1200 UNIT NOT REPORTED
     Route: 042
     Dates: start: 20190130, end: 20190304
  2. GLUCOPHAGE [Concomitant]
     Active Substance: METFORMIN HYDROCHLORIDE
     Indication: DIABETES MELLITUS
     Dosage: 500 UNIT NOT REPORTED
     Route: 048

REACTIONS (2)
  - Autoimmune hepatitis [Unknown]
  - Hepatic failure [Fatal]

NARRATIVE: CASE EVENT DATE: 20190220
